FAERS Safety Report 22658325 (Version 1)
Quarter: 2023Q2

REPORT INFORMATION
  Report Type: Spontaneous
  Country: US (occurrence: US)
  Receive Date: 20230630
  Receipt Date: 20230630
  Transmission Date: 20230722
  Serious: No
  Sender: FDA-Public Use
  Company Number: US-GLAXOSMITHKLINE-USCH2023AMR031583

PATIENT
  Sex: Female

DRUGS (16)
  1. VOLTAREN [Suspect]
     Active Substance: DICLOFENAC SODIUM
     Indication: Axial spondyloarthritis
     Dosage: UNK
  2. ASPIRIN [Suspect]
     Active Substance: ASPIRIN
     Indication: Axial spondyloarthritis
     Dosage: UNK
  3. IBUPROFEN [Suspect]
     Active Substance: IBUPROFEN
     Indication: Axial spondyloarthritis
     Dosage: UNK
  4. ATORVASTATIN [Suspect]
     Active Substance: ATORVASTATIN
     Indication: Axial spondyloarthritis
     Dosage: UNK
  5. MONTELUKAST [Suspect]
     Active Substance: MONTELUKAST SODIUM
     Indication: Axial spondyloarthritis
     Dosage: UNK
  6. POTASSIUM CHLORIDE [Suspect]
     Active Substance: POTASSIUM CHLORIDE
     Indication: Axial spondyloarthritis
     Dosage: UNK
  7. VITAMIN D3 [Suspect]
     Active Substance: CHOLECALCIFEROL
     Indication: Axial spondyloarthritis
     Dosage: UNK
  8. HYDROCHLOROTHIAZIDE [Suspect]
     Active Substance: HYDROCHLOROTHIAZIDE
     Indication: Axial spondyloarthritis
     Dosage: UNK
  9. TELMISARTAN [Suspect]
     Active Substance: TELMISARTAN
     Indication: Axial spondyloarthritis
     Dosage: UNK
  10. DULOXETINE [Suspect]
     Active Substance: DULOXETINE
     Indication: Axial spondyloarthritis
     Dosage: UNK
  11. CELECOXIB [Suspect]
     Active Substance: CELECOXIB
     Indication: Axial spondyloarthritis
     Dosage: UNK
  12. ETODOLAC [Suspect]
     Active Substance: ETODOLAC
     Indication: Axial spondyloarthritis
     Dosage: UNK
  13. PIROXICAM [Suspect]
     Active Substance: PIROXICAM
     Indication: Axial spondyloarthritis
     Dosage: UNK
  14. MELOXICAM [Suspect]
     Active Substance: MELOXICAM
     Indication: Axial spondyloarthritis
     Dosage: UNK
  15. NABUMETONE [Suspect]
     Active Substance: NABUMETONE
     Indication: Axial spondyloarthritis
     Dosage: UNK
  16. LIDOCAINE [Suspect]
     Active Substance: LIDOCAINE
     Indication: Axial spondyloarthritis
     Dosage: UNK

REACTIONS (14)
  - Discomfort [Unknown]
  - Back pain [Unknown]
  - Middle insomnia [Unknown]
  - Meralgia paraesthetica [Unknown]
  - Condition aggravated [Unknown]
  - Heart rate irregular [Unknown]
  - Palpitations [Unknown]
  - Constipation [Unknown]
  - Dyspepsia [Unknown]
  - Hypoaesthesia [Unknown]
  - Paraesthesia [Unknown]
  - Drug ineffective for unapproved indication [Unknown]
  - Product use in unapproved indication [Unknown]
  - Product administered at inappropriate site [Unknown]
